FAERS Safety Report 25735091 (Version 1)
Quarter: 2025Q3

REPORT INFORMATION
  Report Type: Report from Study
  Country: EU (occurrence: EU)
  Receive Date: 20250828
  Receipt Date: 20250828
  Transmission Date: 20251020
  Serious: Yes (Other)
  Sender: TAKEDA
  Company Number: EU-INCYTE CORPORATION-2017IN011381

PATIENT
  Age: 39 Year
  Sex: Male

DRUGS (2)
  1. PONATINIB [Suspect]
     Active Substance: PONATINIB
     Indication: Philadelphia positive acute lymphocytic leukaemia
     Dosage: 45 MILLIGRAM, QD
     Dates: start: 20130117, end: 20140108
  2. PONATINIB [Suspect]
     Active Substance: PONATINIB
     Indication: Tyrosine kinase mutation
     Dosage: 15 MILLIGRAM, BID
     Dates: start: 20140108

REACTIONS (9)
  - Haemophilus infection [Recovered/Resolved]
  - Asthma [Recovered/Resolved]
  - Skin infection [Recovered/Resolved]
  - Lower respiratory tract congestion [Recovered/Resolved]
  - Discomfort [Recovered/Resolved]
  - Animal scratch [Recovered/Resolved]
  - Palpitations [Recovered/Resolved]
  - Dyspnoea [Recovered/Resolved]
  - Hypoglycaemia [Recovered/Resolved]

NARRATIVE: CASE EVENT DATE: 20160810
